FAERS Safety Report 6079312-4 (Version None)
Quarter: 2009Q1

REPORT INFORMATION
  Report Type: 
  Country: None (occurrence: None)
  Receive Date: 20090216
  Receipt Date: 20090211
  Transmission Date: 20090719
  Serious: Yes (Disabling, Other)
  Sender: FDA-Public Use
  Company Number: US-MERCK-0902USA01742

PATIENT
  Age: 69 Year
  Sex: Female

DRUGS (7)
  1. CLINORIL [Suspect]
     Indication: PAIN
     Route: 048
     Dates: end: 20090101
  2. CLINORIL [Suspect]
     Indication: INFLAMMATION
     Route: 048
     Dates: end: 20090101
  3. PLAVIX [Suspect]
     Indication: STENT PLACEMENT
     Route: 048
     Dates: start: 20080101
  4. ASPIRIN [Suspect]
     Route: 065
  5. TOPROL-XL [Concomitant]
     Route: 065
  6. VYTORIN [Concomitant]
     Route: 065
  7. NITROGLYCERIN [Concomitant]
     Route: 065

REACTIONS (5)
  - ABDOMINAL PAIN UPPER [None]
  - CONTUSION [None]
  - DIZZINESS [None]
  - GASTROINTESTINAL HAEMORRHAGE [None]
  - PARAESTHESIA ORAL [None]
